FAERS Safety Report 6160602-1 (Version None)
Quarter: 2009Q2

REPORT INFORMATION
  Report Type: 
  Country: None (occurrence: None)
  Receive Date: 20090420
  Receipt Date: 20090414
  Transmission Date: 20091009
  Serious: Yes (Other)
  Sender: FDA-Public Use
  Company Number: ES-BRISTOL-MYERS SQUIBB COMPANY-14589980

PATIENT
  Age: 69 Year
  Sex: Male

DRUGS (2)
  1. ERBITUX [Suspect]
     Indication: NEOPLASM MALIGNANT
     Route: 042
     Dates: start: 20060101, end: 20070101
  2. RADIATION THERAPY [Concomitant]
     Indication: NEOPLASM MALIGNANT
     Dosage: 1DF = 72GY. 2007-2007: 70 GY
     Dates: start: 20020101, end: 20030101

REACTIONS (2)
  - FOLLICULITIS [None]
  - STOMATITIS [None]
